FAERS Safety Report 4688949-6 (Version None)
Quarter: 2005Q2

REPORT INFORMATION
  Report Type: 
  Country: None (occurrence: None)
  Receive Date: 20050613
  Receipt Date: 20050117
  Transmission Date: 20051028
  Serious: Yes (Hospitalization)
  Sender: FDA-Public Use
  Company Number: US-MERCK-0501USA02881

PATIENT
  Age: 58 Year
  Sex: Male
  Weight: 91 kg

DRUGS (13)
  1. BIAXIN [Concomitant]
     Route: 065
  2. PRILOSEC [Concomitant]
     Route: 065
     Dates: start: 20000101
  3. NEXIUM [Concomitant]
     Route: 065
  4. SKELAXIN [Concomitant]
     Route: 065
  5. ACETAMINOPHEN AND PROPOXYPHENE NAPSYLATE [Concomitant]
     Route: 065
  6. FOLIC ACID [Concomitant]
     Route: 065
  7. FAMVIR [Concomitant]
     Route: 065
  8. VIOXX [Suspect]
     Indication: BACK PAIN
     Route: 048
     Dates: start: 20000101, end: 20030521
  9. VIOXX [Suspect]
     Route: 048
     Dates: start: 20040512, end: 20040901
  10. ULTRACET [Concomitant]
     Route: 065
     Dates: start: 20011001
  11. FLEXERIL [Concomitant]
     Route: 048
  12. HYDROCODONE BITARTRATE [Concomitant]
     Route: 065
  13. SOMA [Concomitant]
     Route: 065

REACTIONS (35)
  - ABDOMINAL PAIN [None]
  - ACUTE MYOCARDIAL INFARCTION [None]
  - ANGER [None]
  - ANXIETY [None]
  - ATHEROSCLEROSIS [None]
  - BACK INJURY [None]
  - BACK PAIN [None]
  - BLOOD CHOLESTEROL INCREASED [None]
  - BLOOD PRESSURE INCREASED [None]
  - CORONARY ARTERY DISEASE [None]
  - CORONARY ARTERY STENOSIS [None]
  - COUGH [None]
  - DECREASED INTEREST [None]
  - DEPRESSION [None]
  - DIZZINESS POSTURAL [None]
  - DRUG EFFECT DECREASED [None]
  - ECCHYMOSIS [None]
  - EJECTION FRACTION DECREASED [None]
  - EMOTIONAL DISTRESS [None]
  - FEAR [None]
  - GASTROOESOPHAGEAL REFLUX DISEASE [None]
  - HEADACHE [None]
  - INSOMNIA [None]
  - INTERVERTEBRAL DISC PROTRUSION [None]
  - ISCHAEMIC CARDIOMYOPATHY [None]
  - MIGRAINE [None]
  - MITRAL VALVE INCOMPETENCE [None]
  - MUSCULOSKELETAL DISCOMFORT [None]
  - PLATELET AGGREGATION INCREASED [None]
  - RENAL DISORDER [None]
  - SINUS DISORDER [None]
  - SOCIAL AVOIDANT BEHAVIOUR [None]
  - TREATMENT NONCOMPLIANCE [None]
  - VENTRICULAR HYPOKINESIA [None]
  - WEIGHT DECREASED [None]
